FAERS Safety Report 17779522 (Version 1)
Quarter: 2020Q2

REPORT INFORMATION
  Report Type: Spontaneous
  Country: US (occurrence: US)
  Receive Date: 20200514
  Receipt Date: 20200514
  Transmission Date: 20200714
  Serious: No
  Sender: FDA-Public Use
  Company Number: US-HETERO-HET2020US00500

PATIENT

DRUGS (1)
  1. LOSARTAN. [Suspect]
     Active Substance: LOSARTAN
     Indication: PRODUCT USED FOR UNKNOWN INDICATION
     Dosage: 25 MG
     Route: 048

REACTIONS (10)
  - Asthenia [Unknown]
  - Eating disorder [Unknown]
  - Nausea [Unknown]
  - Muscle spasms [Unknown]
  - Back pain [Unknown]
  - Pyrexia [Unknown]
  - Neck pain [Unknown]
  - Myalgia [Unknown]
  - Malaise [Unknown]
  - Headache [Unknown]
